FAERS Safety Report 24136206 (Version 2)
Quarter: 2024Q3

REPORT INFORMATION
  Report Type: Spontaneous
  Country: US (occurrence: US)
  Receive Date: 20240725
  Receipt Date: 20240813
  Transmission Date: 20241017
  Serious: No
  Sender: PFIZER
  Company Number: US-PFIZER INC-202400221644

PATIENT
  Age: 74 Year
  Sex: Female
  Weight: 76.19 kg

DRUGS (8)
  1. PAXLOVID [Suspect]
     Active Substance: NIRMATRELVIR\RITONAVIR
     Indication: COVID-19 treatment
     Dosage: [NIRMATRELVIR 300 MG]/[RITONAVIR 100 MG]; 2X/DAY
     Route: 048
     Dates: start: 20240708, end: 20240714
  2. DICLOFENAC [Concomitant]
     Active Substance: DICLOFENAC
     Indication: Arthritis
     Dosage: 75 MG, 1X/DAY
  3. LISINOPRIL [Concomitant]
     Active Substance: LISINOPRIL
     Indication: Hypertension
     Dosage: 100 MG, 1X/DAY
  4. ATENOLOL [Concomitant]
     Active Substance: ATENOLOL
     Dosage: 25 MG, 1X/DAY
  5. SIMVASTATIN [Concomitant]
     Active Substance: SIMVASTATIN
     Dates: end: 20240708
  6. CLARITIN [Concomitant]
     Active Substance: LORATADINE
  7. ZYRTEC [Concomitant]
     Active Substance: CETIRIZINE HYDROCHLORIDE
     Dosage: 10 MG, 1X/DAY
  8. TYLENOL [Concomitant]
     Active Substance: ACETAMINOPHEN
     Dosage: 500 MG, 1X/DAY

REACTIONS (5)
  - COVID-19 [Recovered/Resolved]
  - Disease recurrence [Recovered/Resolved]
  - Diarrhoea [Recovered/Resolved]
  - Dysgeusia [Recovered/Resolved]
  - Inappropriate schedule of product administration [Unknown]

NARRATIVE: CASE EVENT DATE: 20240708
